FAERS Safety Report 8506373-2 (Version None)
Quarter: 2012Q3

REPORT INFORMATION
  Report Type: 
  Country: None (occurrence: None)
  Receive Date: 20120712
  Receipt Date: 20120703
  Transmission Date: 20120928
  Serious: Yes (Other)
  Sender: FDA-Public Use
  Company Number: US-JNJFOC-20120702527

PATIENT
  Age: 60 Year
  Sex: Female

DRUGS (6)
  1. OXYCODONE HCL [Concomitant]
  2. DIOVAN [Concomitant]
  3. COLCHICINE [Concomitant]
  4. XARELTO [Suspect]
     Indication: THROMBOSIS PROPHYLAXIS
     Route: 048
     Dates: start: 20120615
  5. XARELTO [Suspect]
     Indication: KNEE ARTHROPLASTY
     Route: 048
     Dates: start: 20120615
  6. METOPROLOL TARTRATE [Concomitant]

REACTIONS (2)
  - ARTHROPATHY [None]
  - ARTHRALGIA [None]
